FAERS Safety Report 16981312 (Version 1)
Quarter: 2019Q4

REPORT INFORMATION
  Report Type: Report from Study
  Country: None (occurrence: NL)
  Receive Date: 20191031
  Receipt Date: 20191031
  Transmission Date: 20200122
  Serious: Yes (Hospitalization, Other)
  Sender: FDA-Public Use
  Company Number: NL-ABBVIE-19K-114-2778926-00

PATIENT
  Sex: Male

DRUGS (2)
  1. HUMIRA [Suspect]
     Active Substance: ADALIMUMAB
     Indication: CROHN^S DISEASE
     Route: 058
     Dates: start: 20171019
  2. METHOTREXATE. [Concomitant]
     Active Substance: METHOTREXATE
     Indication: FISTULA

REACTIONS (3)
  - Fistula [Not Recovered/Not Resolved]
  - Intestinal fistula [Not Recovered/Not Resolved]
  - Intestinal haemorrhage [Not Recovered/Not Resolved]

NARRATIVE: CASE EVENT DATE: 2019
